FAERS Safety Report 18990270 (Version 1)
Quarter: 2021Q1

REPORT INFORMATION
  Report Type: Spontaneous
  Country: CN (occurrence: CN)
  Receive Date: 20210310
  Receipt Date: 20210310
  Transmission Date: 20210420
  Serious: Yes (Other)
  Sender: FDA-Public Use
  Company Number: CN-ACCORD-219256

PATIENT
  Age: 52 Year
  Sex: Male

DRUGS (8)
  1. SEMUSTINE [Suspect]
     Active Substance: SEMUSTINE
     Indication: PLASMABLASTIC LYMPHOMA
     Dosage: MECCNU 450MG ?3
  2. ANTITHYMOCYTE IMMUNOGLOBULIN [Suspect]
     Active Substance: THYMOCYTE IMMUNE GLOBULIN NOS
     Indication: PLASMABLASTIC LYMPHOMA
     Dosage: 2.5MG/KG ?5, ?4, ?3, ?2
  3. CICLOSPORIN [Suspect]
     Active Substance: CYCLOSPORINE
     Indication: GRAFT VERSUS HOST DISEASE
  4. METHOTREXATE. [Suspect]
     Active Substance: METHOTREXATE
     Indication: GRAFT VERSUS HOST DISEASE
     Dosage: SHORT?TERM METHOTREXATE
  5. CYTARABINE/CYTARABINE HYDROCHLORIDE/CYTARABINE OCFOSFATE [Suspect]
     Active Substance: CYTARABINE
     Indication: PLASMABLASTIC LYMPHOMA
     Dosage: 3.5G ?10, ?9
  6. CYCLOPHOSPHAMIDE/CYCLOPHOSPHAMIDE MONOHYDRATE [Suspect]
     Active Substance: CYCLOPHOSPHAMIDE
     Indication: PLASMABLASTIC LYMPHOMA
     Dosage: 3G ?5, ?4
  7. MYCOPHENOLIC ACID. [Suspect]
     Active Substance: MYCOPHENOLIC ACID
     Indication: GRAFT VERSUS HOST DISEASE
  8. BUSULFAN. [Suspect]
     Active Substance: BUSULFAN
     Indication: PLASMABLASTIC LYMPHOMA
     Dosage: 51.6MG Q6H ?8, ?7, ?6

REACTIONS (2)
  - Fungal infection [Recovered/Resolved]
  - Cystitis haemorrhagic [Recovered/Resolved]
